FAERS Safety Report 18879041 (Version 3)
Quarter: 2023Q1

REPORT INFORMATION
  Report Type: Spontaneous
  Country: US (occurrence: US)
  Receive Date: 20210211
  Receipt Date: 20230124
  Transmission Date: 20230417
  Serious: Yes (Other)
  Sender: FDA-Public Use
  Company Number: US-002147023-NVSC2021US029316

PATIENT
  Sex: Male

DRUGS (2)
  1. BEOVU [Suspect]
     Active Substance: BROLUCIZUMAB-DBLL
     Indication: Age-related macular degeneration
     Dosage: UNK
     Route: 031
     Dates: start: 20191213
  2. BEOVU [Suspect]
     Active Substance: BROLUCIZUMAB-DBLL
     Dosage: UNK
     Route: 031
     Dates: start: 20200110

REACTIONS (6)
  - Retinal occlusive vasculitis [Unknown]
  - Vitreous floaters [Unknown]
  - Angle closure glaucoma [Unknown]
  - Open angle glaucoma [Unknown]
  - Cataract nuclear [Unknown]
  - Iridocyclitis [Recovered/Resolved]
